FAERS Safety Report 7387546-1 (Version None)
Quarter: 2011Q1

REPORT INFORMATION
  Report Type: 
  Country: None (occurrence: None)
  Receive Date: 20110331
  Receipt Date: 20110324
  Transmission Date: 20110831
  Serious: Yes (Hospitalization, Other)
  Sender: FDA-Public Use
  Company Number: AU-PFIZER INC-2011063662

PATIENT
  Age: 45 Year
  Sex: Female

DRUGS (1)
  1. IBUPROFEN [Suspect]
     Dosage: 9.6-14.4G/DAY (ABOUT 50 TABLETS PER DAY)

REACTIONS (9)
  - LETHARGY [None]
  - DECREASED APPETITE [None]
  - OVERDOSE [None]
  - TOXICITY TO VARIOUS AGENTS [None]
  - OESOPHAGEAL STENOSIS [None]
  - DENTAL CARIES [None]
  - GASTRIC ULCER [None]
  - MICROCYTIC ANAEMIA [None]
  - RENAL TUBULAR ACIDOSIS [None]
